FAERS Safety Report 6587743-9 (Version None)
Quarter: 2010Q1

REPORT INFORMATION
  Report Type: 
  Country: None (occurrence: None)
  Receive Date: 20100217
  Receipt Date: 20100217
  Transmission Date: 20100710
  Serious: Yes (Other)
  Sender: FDA-Public Use
  Company Number: None

PATIENT
  Age: 33 Year
  Sex: Female

DRUGS (2)
  1. VYVANSE [Suspect]
     Indication: ATTENTION DEFICIT/HYPERACTIVITY DISORDER
     Dosage: 100MG AM PO
     Route: 048
     Dates: start: 20090403, end: 20100216
  2. LOVAZA [Concomitant]

REACTIONS (2)
  - HAEMATOMA [None]
  - HAEMORRHAGE [None]
